FAERS Safety Report 6099418-3 (Version None)
Quarter: 2009Q1

REPORT INFORMATION
  Report Type: 
  Country: None (occurrence: None)
  Receive Date: 20090225
  Receipt Date: 20090225
  Transmission Date: 20090719
  Serious: Yes (Hospitalization)
  Sender: FDA-Public Use
  Company Number: None

PATIENT
  Age: 54 Year
  Sex: Male
  Weight: 84 kg

DRUGS (3)
  1. BEVACIUMAB 7.5MG GENENTECH [Suspect]
     Indication: GASTROINTESTINAL DISORDER
     Dosage: 7.5 MG EVERY 3 WEEKS IV DRIP
     Route: 041
     Dates: start: 20090211, end: 20090220
  2. DOCETAXEL [Suspect]
     Indication: GASTROINTESTINAL DISORDER
     Dosage: 70MG EVERY 3 WEEKS IV DRIP
     Route: 041
     Dates: start: 20090211, end: 20090220
  3. OXALIPLATIN [Suspect]
     Dosage: 75MG EVERY 3 WEEKS IV DRIP
     Route: 041

REACTIONS (3)
  - ABDOMINAL PAIN LOWER [None]
  - NEUTROPENIA [None]
  - RECTAL HAEMORRHAGE [None]
